FAERS Safety Report 9283001 (Version 2)
Quarter: 2013Q4

REPORT INFORMATION
  Report Type: Spontaneous
  Country: US (occurrence: US)
  Receive Date: 20130510
  Receipt Date: 20131105
  Transmission Date: 20140711
  Serious: Yes (Other)
  Sender: FDA-Public Use
  Company Number: US-BAYER-2013-057315

PATIENT
  Age: 35 Year
  Sex: Female

DRUGS (25)
  1. MULTIVITAMIN [Concomitant]
     Dosage: ONE TABLET DAILY
     Route: 048
     Dates: start: 20091128, end: 20120614
  2. DOCUSATE [Concomitant]
     Dosage: 100 MG 1 TO 2 TIMES A DAY AS NEEDED
     Route: 048
     Dates: start: 20100415, end: 20121109
  3. LAMICTAL [Concomitant]
     Dosage: 150 MG, BID
     Route: 048
     Dates: start: 20111208
  4. LAMICTAL [Concomitant]
     Dosage: 150 MG, BID
     Route: 048
     Dates: start: 20120430
  5. LAMICTAL [Concomitant]
     Dosage: 150 MG, BID
     Route: 048
     Dates: start: 20120529
  6. ALBUTEROL [Concomitant]
     Indication: WHEEZING
     Dosage: 2 PUFFS 4 TIMES A DAY AS NEEDED
     Route: 045
     Dates: start: 20111208
  7. ALBUTEROL [Concomitant]
     Indication: WHEEZING
     Dosage: 2 PUFFS 4 TIMES A DAY AS NEEDED
     Route: 045
     Dates: start: 20120430
  8. SINGULAIR [Concomitant]
     Dosage: 10 MG DAILY
     Route: 048
     Dates: start: 20111208
  9. SINGULAIR [Concomitant]
     Dosage: 10 MG, DAILY
     Route: 048
     Dates: start: 20120430
  10. SINGULAIR [Concomitant]
     Dosage: 10 MG, DAILY
     Route: 048
     Dates: start: 20120628
  11. PRILOSEC [Concomitant]
     Dosage: 20 MG, EVERY DAY
     Route: 048
     Dates: start: 20111208
  12. PRILOSEC [Concomitant]
     Dosage: 20 MG, EVERY DAY
     Route: 048
     Dates: start: 20120430
  13. PRILOSEC [Concomitant]
     Dosage: 20 MG, EVERY DAY
     Route: 048
     Dates: start: 20120529
  14. ABILIFY [Concomitant]
     Dosage: 10 MG, IN THE MORNING
     Route: 048
     Dates: start: 20120113, end: 20121116
  15. AMOXICILLIN [Concomitant]
     Dosage: 500 MG, 2 CAPS TWICE A DAY FOR 7 DAYS
     Route: 048
     Dates: start: 20120319
  16. FAMOTIDINE [Concomitant]
     Indication: ABDOMINAL DISCOMFORT
     Dosage: 40 MG, DAILY
     Route: 048
     Dates: start: 20120430
  17. YASMIN [Suspect]
     Dosage: UNK
     Dates: start: 2011, end: 2012
  18. OCELLA [Suspect]
     Dosage: UNK
     Dates: start: 2011, end: 2012
  19. YAZ [Suspect]
     Dosage: UNK
     Dates: start: 2011, end: 2012
  20. EFFEXOR [Concomitant]
     Dosage: 75 PLUS 150 MG DAILY
     Route: 048
     Dates: start: 20111208
  21. EFFEXOR [Concomitant]
     Dosage: 75 PLUS 150 MG DAILY
     Route: 048
     Dates: start: 20120430
  22. EFFEXOR [Concomitant]
     Dosage: 75 PLUS 150 MG DAILY
     Route: 048
     Dates: start: 20120529
  23. KLONOPIN [Concomitant]
     Indication: ANXIETY
     Dosage: 0.5 MG, EVERYDAY
     Route: 048
     Dates: start: 20111208
  24. KLONOPIN [Concomitant]
     Indication: ANXIETY
     Dosage: 0.5 MG, EVERYDAY
     Route: 048
     Dates: start: 20120430
  25. KLONOPIN [Concomitant]
     Indication: ANXIETY
     Dosage: 0.5 MG, EVERYDAY
     Route: 048
     Dates: start: 20120529

REACTIONS (8)
  - Cerebrovascular accident [None]
  - Pain [None]
  - Injury [None]
  - Anxiety [None]
  - Emotional distress [None]
  - General physical health deterioration [None]
  - Abdominal pain [None]
  - Pain [None]
